FAERS Safety Report 23430670 (Version 1)
Quarter: 2024Q1

REPORT INFORMATION
  Report Type: Spontaneous
  Country: US (occurrence: US)
  Receive Date: 20240123
  Receipt Date: 20240123
  Transmission Date: 20240410
  Serious: Yes (Other)
  Sender: FDA-Public Use
  Company Number: US-TEVA-VS-3146424

PATIENT

DRUGS (1)
  1. SCOPOLAMINE [Suspect]
     Active Substance: SCOPOLAMINE
     Dosage: DOSE: 1 MG/72HR
     Route: 062

REACTIONS (3)
  - Neoplasm malignant [Unknown]
  - Product use issue [Unknown]
  - Skin disorder [Unknown]
